FAERS Safety Report 11926962 (Version 1)
Quarter: 2016Q1

REPORT INFORMATION
  Report Type: Spontaneous
  Country: IT (occurrence: IT)
  Receive Date: 20160119
  Receipt Date: 20160119
  Transmission Date: 20160526
  Serious: Yes (Other)
  Sender: FDA-Public Use
  Company Number: IT-TEVA-626742ISR

PATIENT
  Age: 43 Year
  Sex: Male
  Weight: 75 kg

DRUGS (2)
  1. VINBLASTINE [Suspect]
     Active Substance: VINBLASTINE
  2. ETOPOSIDE. [Suspect]
     Active Substance: ETOPOSIDE

REACTIONS (2)
  - Renal abscess [Unknown]
  - Aspergillus infection [Unknown]
